FAERS Safety Report 4479358-3 (Version None)
Quarter: 2004Q4

REPORT INFORMATION
  Report Type: 
  Country: None (occurrence: None)
  Receive Date: 20041020
  Receipt Date: 20041013
  Transmission Date: 20050328
  Serious: Yes (Hospitalization)
  Sender: FDA-Public Use
  Company Number: US-JNJFOC-20041004401

PATIENT
  Sex: Female

DRUGS (4)
  1. DURAGESIC [Suspect]
     Route: 062
  2. FLEXERIL [Concomitant]
     Route: 049
  3. EFFEXOR [Concomitant]
     Route: 049
  4. ZYRTEC [Concomitant]
     Route: 049

REACTIONS (5)
  - COMA [None]
  - CONVULSION [None]
  - FALL [None]
  - MUSCLE SPASMS [None]
  - OVERDOSE [None]
